FAERS Safety Report 10375589 (Version 2)
Quarter: 2014Q3

REPORT INFORMATION
  Report Type: Spontaneous
  Country: US (occurrence: US)
  Receive Date: 20140811
  Receipt Date: 20140811
  Transmission Date: 20150326
  Serious: No
  Sender: FDA-Public Use
  Company Number: US-GLAXOSMITHKLINE-A0885894A

PATIENT
  Age: 76 Year
  Sex: Female

DRUGS (17)
  1. LEVOTHYROXINE [Concomitant]
     Active Substance: LEVOTHYROXINE
  2. NITROFURANTOIN. [Concomitant]
     Active Substance: NITROFURANTOIN
  3. DONEPEZIL [Concomitant]
     Active Substance: DONEPEZIL
  4. CARTIA XT [Concomitant]
     Active Substance: DILTIAZEM HYDROCHLORIDE
  5. SINEMET [Suspect]
     Active Substance: CARBIDOPA\LEVODOPA
     Indication: PARKINSON^S DISEASE
     Route: 065
  6. EFFEXOR XR [Suspect]
     Active Substance: VENLAFAXINE HYDROCHLORIDE
     Indication: PARKINSON^S DISEASE
     Route: 065
     Dates: start: 2004
  7. REQUIP [Suspect]
     Active Substance: ROPINIROLE HYDROCHLORIDE
     Indication: PARKINSON^S DISEASE
     Route: 048
     Dates: start: 1996, end: 200910
  8. ASPIRIN. [Concomitant]
     Active Substance: ASPIRIN
  9. ROPINIROLE. [Suspect]
     Active Substance: ROPINIROLE
     Indication: PARKINSON^S DISEASE
     Route: 048
  10. LIPITOR [Concomitant]
     Active Substance: ATORVASTATIN CALCIUM
  11. HYDROXYCHLOROQUINE [Concomitant]
     Active Substance: HYDROXYCHLOROQUINE
  12. NAMENDA [Concomitant]
     Active Substance: MEMANTINE HYDROCHLORIDE
  13. ATORVASTATIN [Concomitant]
     Active Substance: ATORVASTATIN
  14. REQUIP XL [Suspect]
     Active Substance: ROPINIROLE HYDROCHLORIDE
     Indication: PARKINSON^S DISEASE
     Dosage: 8MG VARIABLE DOSE
     Route: 048
     Dates: start: 20091013
  15. TYLENOL [Concomitant]
     Active Substance: ACETAMINOPHEN
  16. TOPROL XL [Concomitant]
     Active Substance: METOPROLOL SUCCINATE
  17. SEROQUEL [Concomitant]
     Active Substance: QUETIAPINE FUMARATE

REACTIONS (6)
  - Gait disturbance [Not Recovered/Not Resolved]
  - Drug ineffective [Unknown]
  - Medication residue present [Not Recovered/Not Resolved]
  - Hallucination [Not Recovered/Not Resolved]
  - Diarrhoea [Not Recovered/Not Resolved]
  - Fall [Unknown]

NARRATIVE: CASE EVENT DATE: 201007
